FAERS Safety Report 16191358 (Version 1)
Quarter: 2019Q2

REPORT INFORMATION
  Report Type: Spontaneous
  Country: AR (occurrence: AR)
  Receive Date: 20190412
  Receipt Date: 20190412
  Transmission Date: 20190711
  Serious: Yes (Other)
  Sender: FDA-Public Use
  Company Number: AR-AMGEN-ARGSP2019057385

PATIENT
  Age: 46 Year
  Sex: Female

DRUGS (1)
  1. ENBREL [Suspect]
     Active Substance: ETANERCEPT
     Indication: RHEUMATOID ARTHRITIS
     Dosage: 50 MILLIGRAM, CYCLICAL (EVERY 15 DAYS)
     Route: 065
     Dates: start: 20161027, end: 201808

REACTIONS (2)
  - Product use issue [Unknown]
  - Hepatitis [Unknown]

NARRATIVE: CASE EVENT DATE: 20161027
